FAERS Safety Report 24590048 (Version 1)
Quarter: 2024Q4

REPORT INFORMATION
  Report Type: Spontaneous
  Country: DE (occurrence: DE)
  Receive Date: 20241107
  Receipt Date: 20241107
  Transmission Date: 20250115
  Serious: Yes (Other)
  Sender: ROCHE
  Company Number: DE-ROCHE-10000123604

PATIENT
  Age: 23 Year
  Sex: Female

DRUGS (11)
  1. MYCOPHENOLATE MOFETIL [Suspect]
     Active Substance: MYCOPHENOLATE MOFETIL
     Indication: Lupus nephritis
     Route: 065
  2. LUPKYNIS [Concomitant]
     Active Substance: VOCLOSPORIN
     Indication: Lupus nephritis
     Route: 048
  3. HYDROXYCHLOROQUINE [Concomitant]
     Active Substance: HYDROXYCHLOROQUINE
  4. CORTISONE [Concomitant]
     Active Substance: CORTISONE
  5. METHOTREXATE [Concomitant]
     Active Substance: METHOTREXATE
  6. AZATHIOPRINE [Concomitant]
     Active Substance: AZATHIOPRINE
  7. DAPSONE [Concomitant]
     Active Substance: DAPSONE
  8. BELIMUMAB [Concomitant]
     Active Substance: BELIMUMAB
  9. ANIFROLUMAB [Concomitant]
     Active Substance: ANIFROLUMAB
  10. PREDNISOLONE [Concomitant]
     Active Substance: PREDNISOLONE
  11. TECLISTAMAB [Concomitant]
     Active Substance: TECLISTAMAB

REACTIONS (2)
  - Off label use [Unknown]
  - Lupus nephritis [Unknown]
